FAERS Safety Report 7053809-2 (Version None)
Quarter: 2010Q4

REPORT INFORMATION
  Report Type: 
  Country: None (occurrence: None)
  Receive Date: 20101020
  Receipt Date: 20101013
  Transmission Date: 20110411
  Serious: Yes (Hospitalization)
  Sender: FDA-Public Use
  Company Number: GB-B.I. PHARMACEUTICALS,INC./RIDGEFIELD-2010-DE-05698GD

PATIENT
  Age: 51 Year
  Sex: Male

DRUGS (5)
  1. DIPYRIDAMOLE [Suspect]
     Indication: ANTIPLATELET THERAPY
     Dosage: 225 MG
  2. ASPIRIN [Suspect]
     Indication: ANTIPLATELET THERAPY
     Dosage: 200 MG
  3. TINZAPARIN [Suspect]
     Indication: ANTICOAGULANT THERAPY
     Dosage: 25000 U
  4. TINZAPARIN [Suspect]
     Dosage: 15000 U
  5. TINZAPARIN [Suspect]
     Dosage: 18000 U

REACTIONS (7)
  - COMPARTMENT SYNDROME [None]
  - MONOPARESIS [None]
  - MUSCLE HAEMORRHAGE [None]
  - MUSCLE NECROSIS [None]
  - OEDEMA PERIPHERAL [None]
  - PAIN [None]
  - PARAESTHESIA [None]
